FAERS Safety Report 17614042 (Version 3)
Quarter: 2020Q2

REPORT INFORMATION
  Report Type: Spontaneous
  Country: US (occurrence: US)
  Receive Date: 20200402
  Receipt Date: 20200510
  Transmission Date: 20200713
  Serious: Yes (Other)
  Sender: FDA-Public Use
  Company Number: US-HBP-2020US020283

PATIENT
  Age: 61 Year
  Sex: Male

DRUGS (1)
  1. VALCHLOR [Suspect]
     Active Substance: MECHLORETHAMINE
     Indication: CUTANEOUS T-CELL LYMPHOMA
     Dosage: THIN FILM, QOD AS TOLERATED
     Route: 061

REACTIONS (9)
  - Atypical pneumonia [Recovered/Resolved]
  - Sinusitis [Recovering/Resolving]
  - Cough [Recovering/Resolving]
  - Pruritus [Unknown]
  - Chills [Recovering/Resolving]
  - Off label use [Unknown]
  - Sputum discoloured [Recovering/Resolving]
  - Hot flush [Recovering/Resolving]
  - Bronchitis [Recovering/Resolving]

NARRATIVE: CASE EVENT DATE: 201912
